FAERS Safety Report 17320368 (Version 1)
Quarter: 2020Q1

REPORT INFORMATION
  Report Type: Other
  Country: US (occurrence: US)
  Receive Date: 20200126
  Receipt Date: 20200126
  Transmission Date: 20200409
  Serious: No
  Sender: FDA-Public Use
  Company Number: US-ACORDA-ACO_157374_2019

PATIENT
  Sex: Female

DRUGS (2)
  1. TYSABRI [Suspect]
     Active Substance: NATALIZUMAB
     Indication: MULTIPLE SCLEROSIS
     Dosage: 300 MILLIGRAM, MONTHLY, INFUSED OVER ONE HOUR
     Route: 042
     Dates: start: 20180529
  2. AMPYRA [Suspect]
     Active Substance: DALFAMPRIDINE
     Indication: GAIT DISTURBANCE
     Dosage: UNK
     Route: 065

REACTIONS (5)
  - Balance disorder [Unknown]
  - Fall [Recovered/Resolved]
  - Condition aggravated [Unknown]
  - Gait disturbance [Unknown]
  - Pain in extremity [Unknown]
